FAERS Safety Report 12148948 (Version 1)
Quarter: 2016Q1

REPORT INFORMATION
  Report Type: Spontaneous
  Country: GB (occurrence: GB)
  Receive Date: 20160304
  Receipt Date: 20160304
  Transmission Date: 20160526
  Serious: Yes (Hospitalization)
  Sender: FDA-Public Use
  Company Number: GB-TEVA-639736ACC

PATIENT
  Age: 55 Year
  Sex: Male

DRUGS (2)
  1. CITALOPRAM [Suspect]
     Active Substance: CITALOPRAM HYDROBROMIDE
     Dosage: 20 MILLIGRAM DAILY;
     Route: 048
     Dates: start: 20150901
  2. PREGABALIN. [Concomitant]
     Active Substance: PREGABALIN
     Dates: start: 20151101

REACTIONS (3)
  - Haematoma [Unknown]
  - Haemorrhage [Recovered/Resolved with Sequelae]
  - Contusion [Unknown]
